FAERS Safety Report 14920577 (Version 2)
Quarter: 2018Q2

REPORT INFORMATION
  Report Type: Spontaneous
  Country: US (occurrence: US)
  Receive Date: 20180521
  Receipt Date: 20180529
  Transmission Date: 20180711
  Serious: Yes (Other)
  Sender: FDA-Public Use
  Company Number: US-SHIRE-US201818744

PATIENT
  Sex: Female

DRUGS (1)
  1. GATTEX [Suspect]
     Active Substance: TEDUGLUTIDE\WATER
     Indication: PRODUCT USED FOR UNKNOWN INDICATION
     Dosage: 0.1525 UNK, ALTERNATIVE DAYS
     Route: 065
     Dates: start: 20170206

REACTIONS (3)
  - Inappropriate schedule of drug administration [Recovered/Resolved]
  - Dialysis [Not Recovered/Not Resolved]
  - Nonspecific reaction [Unknown]
